FAERS Safety Report 7982256-1 (Version None)
Quarter: 2011Q4

REPORT INFORMATION
  Report Type: 
  Country: None (occurrence: None)
  Receive Date: 20111215
  Receipt Date: 20111215
  Transmission Date: 20120403
  Serious: Yes (Life-Threatening, Hospitalization)
  Sender: FDA-Public Use
  Company Number: None

PATIENT
  Sex: Male
  Weight: 121 kg

DRUGS (1)
  1. DABIGATRAN [Suspect]
     Indication: ATRIAL FIBRILLATION
     Dosage: 150MG
     Route: 048
     Dates: start: 20110614, end: 20111103

REACTIONS (9)
  - PNEUMOTHORAX [None]
  - THROMBOCYTOPENIA [None]
  - DYSPNOEA EXERTIONAL [None]
  - RENAL FAILURE [None]
  - PERICARDIAL HAEMORRHAGE [None]
  - CARDIAC TAMPONADE [None]
  - DIALYSIS [None]
  - ATRIAL FIBRILLATION [None]
  - CARDIAC ARREST [None]
